FAERS Safety Report 14906146 (Version 1)
Quarter: 2018Q2

REPORT INFORMATION
  Report Type: Spontaneous
  Country: US (occurrence: US)
  Receive Date: 20180517
  Receipt Date: 20180517
  Transmission Date: 20180711
  Serious: No
  Sender: FDA-Public Use
  Company Number: US-SA-2018SA070671

PATIENT
  Age: 64 Year
  Sex: Female
  Weight: 113.39 kg

DRUGS (11)
  1. MAGNESIUM [Concomitant]
     Active Substance: MAGNESIUM
     Indication: CHRONIC LYMPHOCYTIC LEUKAEMIA
     Dosage: 1 A DAY; 2 TWICE A DAY
     Route: 065
     Dates: start: 2013
  2. FOLIC ACID. [Concomitant]
     Active Substance: FOLIC ACID
     Indication: LEUKAEMIA
     Dosage: 1 A DAY; 2 TWICE A DAY
     Route: 065
     Dates: start: 2013
  3. POTASSIUM [Concomitant]
     Active Substance: POTASSIUM
     Indication: BLOOD PRESSURE MEASUREMENT
     Route: 065
     Dates: start: 1993
  4. FOLIC ACID. [Concomitant]
     Active Substance: FOLIC ACID
     Indication: CHRONIC LYMPHOCYTIC LEUKAEMIA
     Dosage: 1 A DAY; 2 TWICE A DAY
     Route: 065
     Dates: start: 2013
  5. MAGNESIUM [Concomitant]
     Active Substance: MAGNESIUM
     Indication: LEUKAEMIA
     Dosage: 1 A DAY; 2 TWICE A DAY
     Route: 065
     Dates: start: 2013
  6. ATENOLOL. [Concomitant]
     Active Substance: ATENOLOL
     Indication: HYPERTENSION
     Dosage: 1 A DAY
     Route: 065
     Dates: start: 1993
  7. NOVOLOG [Concomitant]
     Active Substance: INSULIN ASPART
     Indication: DIABETES MELLITUS
     Dosage: SLIDING SCALE
     Route: 065
     Dates: start: 2007
  8. LANTUS SOLOSTAR [Suspect]
     Active Substance: INSULIN GLARGINE
     Indication: TYPE 2 DIABETES MELLITUS
     Dosage: DOSE:25 UNIT(S)
     Route: 051
     Dates: end: 20180306
  9. ARMOUR THYROID [Concomitant]
     Active Substance: THYROID, PORCINE
     Indication: THYROID DISORDER
     Dosage: 1 A DAY
     Route: 065
     Dates: start: 2003
  10. SOLOSTAR [Suspect]
     Active Substance: DEVICE
     Indication: TYPE 2 DIABETES MELLITUS
     Dates: start: 201709
  11. LANTUS SOLOSTAR [Suspect]
     Active Substance: INSULIN GLARGINE
     Indication: TYPE 2 DIABETES MELLITUS
     Dosage: DOSE:9 UNIT(S)
     Route: 051
     Dates: start: 201709

REACTIONS (1)
  - Blood glucose increased [Unknown]
